FAERS Safety Report 9100045 (Version 2)
Quarter: 2013Q1

REPORT INFORMATION
  Report Type: Spontaneous
  Country: US (occurrence: US)
  Receive Date: 20130215
  Receipt Date: 20130314
  Transmission Date: 20140127
  Serious: Yes (Other)
  Sender: FDA-Public Use
  Company Number: US-TARO-2013P1002025

PATIENT
  Age: 72 Year
  Sex: Female
  Weight: 68.04 kg

DRUGS (3)
  1. FLUOROURACIL [Suspect]
     Route: 061
     Dates: start: 20130201, end: 20130201
  2. PRAVASTATIN [Concomitant]
  3. COUMADIN [Concomitant]

REACTIONS (11)
  - Pain [Recovered/Resolved]
  - Heart rate increased [Recovered/Resolved]
  - Headache [Recovered/Resolved]
  - Anxiety [Recovered/Resolved]
  - Blood pressure increased [Recovered/Resolved]
  - Abdominal pain [Recovered/Resolved]
  - Feeling abnormal [Recovered/Resolved]
  - Diverticulum [None]
  - Hepatic steatosis [None]
  - Arteriosclerosis [None]
  - Spinal osteoarthritis [None]
